FAERS Safety Report 9539986 (Version 3)
Quarter: 2014Q1

REPORT INFORMATION
  Report Type: Spontaneous
  Country: US (occurrence: US)
  Receive Date: 20130920
  Receipt Date: 20140218
  Transmission Date: 20141002
  Serious: Yes (Hospitalization, Other)
  Sender: FDA-Public Use
  Company Number: US-SANOFI-AVENTIS-CERZ-1003116

PATIENT
  Age: 65 Year
  Sex: Male
  Weight: 79.3 kg

DRUGS (12)
  1. CEREZYME [Suspect]
     Indication: GAUCHER^S DISEASE
     Dosage: 4800 UNITS; 60 UNITS/KG
     Route: 042
     Dates: start: 20120603, end: 20131219
  2. DIAZEPAM [Concomitant]
  3. POTASSIUM CHLORIDE [Concomitant]
  4. OXYCODONE [Concomitant]
  5. VICODIN [Concomitant]
  6. COUMADIN [Concomitant]
  7. ALLEGRA [Concomitant]
     Route: 048
  8. FERROUS SULFATE [Concomitant]
     Route: 048
  9. INDOMETACIN [Concomitant]
     Route: 048
  10. KETOTIFEN [Concomitant]
     Route: 048
  11. LISINOPRIL [Concomitant]
     Route: 048
  12. OMEPRAZOLE [Concomitant]

REACTIONS (2)
  - Arthralgia [Not Recovered/Not Resolved]
  - Haemarthrosis [Not Recovered/Not Resolved]
